FAERS Safety Report 10070046 (Version 1)
Quarter: 2014Q2

REPORT INFORMATION
  Report Type: Spontaneous
  Country: US (occurrence: US)
  Receive Date: 20140410
  Receipt Date: 20140410
  Transmission Date: 20141212
  Serious: Yes (Hospitalization)
  Sender: FDA-Public Use
  Company Number: US-CELGENEUS-163-21880-14035545

PATIENT
  Age: 73 Year
  Sex: Female
  Weight: 81.72 kg

DRUGS (1)
  1. REVLIMID [Suspect]
     Indication: PLASMA CELL MYELOMA
     Dosage: 25 MILLIGRAM
     Route: 048
     Dates: start: 20140218, end: 20140317

REACTIONS (3)
  - Asthenia [Unknown]
  - Confusional state [Unknown]
  - White blood cell disorder [Unknown]
